FAERS Safety Report 23308161 (Version 1)
Quarter: 2023Q4

REPORT INFORMATION
  Report Type: Spontaneous
  Country: KR (occurrence: KR)
  Receive Date: 20231218
  Receipt Date: 20231218
  Transmission Date: 20240110
  Serious: Yes (Other)
  Sender: FDA-Public Use
  Company Number: KR-PFIZER INC-202300443157

PATIENT
  Age: 52 Year
  Sex: Female
  Weight: 56 kg

DRUGS (3)
  1. PRISTIQ EXTENDED-RELEASE [Suspect]
     Active Substance: DESVENLAFAXINE SUCCINATE
     Indication: Chemical poisoning
     Dosage: 1 DF, 1X/DAY
     Route: 048
     Dates: start: 20221019, end: 20221130
  2. ALPRAZOLAM [Suspect]
     Active Substance: ALPRAZOLAM
     Indication: Chemical poisoning
     Dosage: 1 DF, 1X/DAY
     Route: 048
     Dates: start: 20221128, end: 20221130
  3. OLANZAPINE [Suspect]
     Active Substance: OLANZAPINE
     Indication: Chemical poisoning
     Dosage: 1 DF, 1X/DAY
     Route: 048
     Dates: start: 20221019, end: 20221130

REACTIONS (3)
  - Delirium [Recovered/Resolved]
  - Confusional state [Recovered/Resolved]
  - Off label use [Unknown]

NARRATIVE: CASE EVENT DATE: 20221019
